FAERS Safety Report 12834768 (Version 1)
Quarter: 2016Q4

REPORT INFORMATION
  Report Type: Spontaneous
  Country: US (occurrence: US)
  Receive Date: 20161010
  Receipt Date: 20161010
  Transmission Date: 20170207
  Serious: No
  Sender: FDA-Public Use
  Company Number: US-PFIZER INC-2016469574

PATIENT
  Age: 37 Year
  Sex: Female

DRUGS (1)
  1. XELJANZ XR [Suspect]
     Active Substance: TOFACITINIB CITRATE
     Dosage: 11 MG, UNK

REACTIONS (8)
  - Balance disorder [Unknown]
  - Dizziness [Unknown]
  - Incorrect dose administered [Unknown]
  - Blood pressure abnormal [Unknown]
  - Respiratory disorder [Unknown]
  - Palpitations [Unknown]
  - Rash generalised [Unknown]
  - Dysarthria [Unknown]
